FAERS Safety Report 6536755-X (Version None)
Quarter: 2010Q1

REPORT INFORMATION
  Report Type: 
  Country: None (occurrence: None)
  Receive Date: 20100106
  Receipt Date: 20091223
  Transmission Date: 20100710
  Serious: Yes (Disabling, Other)
  Sender: FDA-Public Use
  Company Number: POMP-1000771

PATIENT
  Age: 5 Year
  Sex: Male
  Weight: 14 kg

DRUGS (1)
  1. MYOZYME [Suspect]
     Indication: GLYCOGEN STORAGE DISEASE TYPE II
     Dosage: 300 MG, INTRAVENOUS
     Route: 042
     Dates: start: 20080926

REACTIONS (5)
  - BODY TEMPERATURE INCREASED [None]
  - CRYING [None]
  - FATIGUE [None]
  - INFUSION RELATED REACTION [None]
  - MALAISE [None]
